FAERS Safety Report 19416172 (Version 2)
Quarter: 2022Q3

REPORT INFORMATION
  Report Type: Report from Study
  Country: US (occurrence: US)
  Receive Date: 20210614
  Receipt Date: 20220808
  Transmission Date: 20221026
  Serious: Yes (Other)
  Sender: FDA-Public Use
  Company Number: US-TAKEDA-2021TUS036419

PATIENT
  Sex: Female

DRUGS (2)
  1. HUMAN IMMUNOGLOBULIN G [Suspect]
     Active Substance: HUMAN IMMUNOGLOBULIN G
     Indication: Primary immunodeficiency syndrome
     Route: 065
  2. GAMMAGARD LIQUID [Suspect]
     Active Substance: HUMAN IMMUNOGLOBULIN G
     Indication: Primary immunodeficiency syndrome
     Dosage: UNK
     Route: 042
     Dates: end: 202012

REACTIONS (7)
  - Thrombosis [Unknown]
  - Deep vein thrombosis [Unknown]
  - Gait disturbance [Unknown]
  - Adverse drug reaction [Unknown]
  - Pain in extremity [Unknown]
  - Pain [Unknown]
  - Headache [Unknown]
